FAERS Safety Report 4911654-5 (Version None)
Quarter: 2006Q1

REPORT INFORMATION
  Report Type: 
  Country: None (occurrence: None)
  Receive Date: 20060213
  Receipt Date: 20060131
  Transmission Date: 20060701
  Serious: Yes (Other)
  Sender: FDA-Public Use
  Company Number: 2006000384

PATIENT
  Age: 73 Year
  Sex: Female

DRUGS (1)
  1. CELEBREX [Suspect]
     Indication: ARTHRITIS
     Dates: start: 20000101

REACTIONS (9)
  - ACTIVITIES OF DAILY LIVING IMPAIRED [None]
  - BRAIN DAMAGE [None]
  - CONTUSION [None]
  - DIFFICULTY IN WALKING [None]
  - ECONOMIC PROBLEM [None]
  - FALL [None]
  - IMPAIRED DRIVING ABILITY [None]
  - TRANSIENT ISCHAEMIC ATTACK [None]
  - TREATMENT NONCOMPLIANCE [None]
